FAERS Safety Report 8832702 (Version 1)
Quarter: 2012Q4

REPORT INFORMATION
  Report Type: 
  Country: US (occurrence: US)
  Receive Date: 20121010
  Receipt Date: 20121010
  Transmission Date: 20130627
  Serious: No
  Sender: FDA-Public Use
  Company Number: US-009507513-1209USA004166

PATIENT
  Age: 45 Year
  Sex: Female
  Weight: 161.45 kg

DRUGS (4)
  1. IMPLANON [Suspect]
     Indication: CONTRACEPTION
     Dosage: UNK
     Route: 058
     Dates: start: 20120907, end: 20120907
  2. IMPLANON [Suspect]
     Dosage: UNK
     Route: 058
     Dates: start: 20120907, end: 20120907
  3. IMPLANON [Suspect]
     Dosage: UNK
     Route: 058
     Dates: start: 20120907
  4. IMPLANON [Suspect]
     Dosage: UNK
     Route: 058
     Dates: end: 201206

REACTIONS (3)
  - Device difficult to use [Recovered/Resolved]
  - Device difficult to use [Recovered/Resolved]
  - No adverse event [Recovered/Resolved]
